FAERS Safety Report 7022958-7 (Version None)
Quarter: 2010Q3

REPORT INFORMATION
  Report Type: 
  Country: None (occurrence: None)
  Receive Date: 20100930
  Receipt Date: 20100920
  Transmission Date: 20110219
  Serious: Yes (Other)
  Sender: FDA-Public Use
  Company Number: US-NAPPMUNDI-USA-2010-0047147

PATIENT
  Sex: Male

DRUGS (2)
  1. OXYCONTIN [Suspect]
     Indication: PAIN
     Dosage: 80 MG, TID
     Dates: start: 20100820
  2. OXYCONTIN [Suspect]
     Dosage: 40 MG, TID

REACTIONS (3)
  - DRUG INEFFECTIVE [None]
  - THROMBOSIS [None]
  - VOMITING [None]
